FAERS Safety Report 11723152 (Version 1)
Quarter: 2015Q4

REPORT INFORMATION
  Report Type: Spontaneous
  Country: US (occurrence: None)
  Receive Date: 20151110
  Receipt Date: 20151110
  Transmission Date: 20160304
  Serious: Yes (Other)
  Sender: FDA-Public Use
  Company Number: None

PATIENT
  Age: 32 Year
  Sex: Female
  Weight: 72.58 kg

DRUGS (3)
  1. MIRENA [Suspect]
     Active Substance: LEVONORGESTREL
     Indication: CONTRACEPTION
     Dosage: YEARS
     Route: 067
  2. IBUPROFEN. [Concomitant]
     Active Substance: IBUPROFEN
  3. TYLENOL [Concomitant]
     Active Substance: ACETAMINOPHEN

REACTIONS (13)
  - Memory impairment [None]
  - Throat tightness [None]
  - Tinnitus [None]
  - Palpitations [None]
  - Activities of daily living impaired [None]
  - Feeling abnormal [None]
  - Headache [None]
  - Vision blurred [None]
  - Cardiac flutter [None]
  - Photophobia [None]
  - Head discomfort [None]
  - Fatigue [None]
  - Blindness [None]

NARRATIVE: CASE EVENT DATE: 20151109
